FAERS Safety Report 4396623-9 (Version None)
Quarter: 2004Q3

REPORT INFORMATION
  Report Type: 
  Country: None (occurrence: None)
  Receive Date: 20040713
  Receipt Date: 20040713
  Transmission Date: 20050211
  Serious: Yes (Death)
  Sender: FDA-Public Use
  Company Number: None

PATIENT
  Age: 70 Year
  Sex: Male
  Weight: 65.7716 kg

DRUGS (4)
  1. SANDOSTATIN LAR [Suspect]
     Indication: RECTAL CANCER
     Dosage: IM
     Route: 030
     Dates: start: 20040617
  2. FLUOROURACIL [Suspect]
     Dosage: IV
     Route: 042
     Dates: start: 20040621, end: 20040625
  3. LEUCOVORIN 50  MG X 5 DAYS [Suspect]
  4. RADIATION [Concomitant]

REACTIONS (5)
  - DEHYDRATION [None]
  - POST PROCEDURAL DIARRHOEA [None]
  - POST PROCEDURAL VOMITING [None]
  - SEPSIS [None]
  - WHITE BLOOD CELL COUNT DECREASED [None]
